FAERS Safety Report 4350260-0 (Version None)
Quarter: 2004Q2

REPORT INFORMATION
  Report Type: 
  Country: None (occurrence: None)
  Receive Date: 20040426
  Receipt Date: 20040419
  Transmission Date: 20050107
  Serious: Yes (Other)
  Sender: FDA-Public Use
  Company Number: 2004-03-0032

PATIENT
  Age: 55 Year
  Sex: Female
  Weight: 71 kg

DRUGS (2)
  1. VIRAFERONPEG [Suspect]
     Indication: HEPATITIS C
     Dosage: 1 INJECT QW SUBCUTANEOUS
     Route: 058
     Dates: start: 20020201, end: 20030101
  2. REBETOL [Suspect]
     Indication: HEPATITIS C
     Dosage: 1000 MG QD
     Dates: start: 20020201, end: 20030101

REACTIONS (16)
  - ANXIETY [None]
  - ARTHRALGIA [None]
  - ARTHROPATHY [None]
  - AUTOIMMUNE THYROIDITIS [None]
  - DEPRESSION [None]
  - FATIGUE [None]
  - HYPERTHYROIDISM [None]
  - HYPOTHYROIDISM [None]
  - KERATITIS [None]
  - KERATOCONJUNCTIVITIS SICCA [None]
  - MULTIPLE ALLERGIES [None]
  - MYALGIA [None]
  - PRURITUS ANI [None]
  - PRURITUS GENERALISED [None]
  - RESPIRATORY DISORDER [None]
  - SLEEP DISORDER [None]
